FAERS Safety Report 5415153-6 (Version None)
Quarter: 2007Q3

REPORT INFORMATION
  Report Type: 
  Country: None (occurrence: None)
  Receive Date: 20070815
  Receipt Date: 20070718
  Transmission Date: 20080115
  Serious: No
  Sender: FDA-Public Use
  Company Number: A0661717A

PATIENT
  Age: 72 Year
  Sex: Female

DRUGS (9)
  1. COREG CR [Suspect]
     Indication: DRUG USE FOR UNKNOWN INDICATION
     Dosage: 40MG PER DAY
     Route: 048
     Dates: start: 20070601, end: 20070601
  2. ZETIA [Concomitant]
  3. LYRICA [Concomitant]
  4. DARVOCET [Concomitant]
  5. HUMALOG [Concomitant]
  6. PLAVIX [Concomitant]
  7. BUMEX [Concomitant]
  8. DIOVAN [Concomitant]
  9. IMDUR [Concomitant]

REACTIONS (4)
  - ACCIDENTAL OVERDOSE [None]
  - DRUG DISPENSING ERROR [None]
  - FATIGUE [None]
  - PHARMACEUTICAL PRODUCT COMPLAINT [None]
